FAERS Safety Report 6686866-3 (Version None)
Quarter: 2010Q2

REPORT INFORMATION
  Report Type: 
  Country: None (occurrence: None)
  Receive Date: 20100416
  Receipt Date: 20100416
  Transmission Date: 20101027
  Serious: No
  Sender: FDA-Public Use
  Company Number: None

PATIENT
  Sex: Female
  Weight: 63.5036 kg

DRUGS (2)
  1. WARFARIN SODIUM [Suspect]
     Indication: ATRIAL FIBRILLATION
     Dosage: 4-5 MG 1 DAY
     Dates: start: 20090601, end: 20100401
  2. DILTIAZEM [Suspect]
     Indication: ATRIAL FIBRILLATION
     Dosage: 60 MG       3 DAY
     Dates: start: 20090601, end: 20100401

REACTIONS (1)
  - CARBOHYDRATE ANTIGEN 125 INCREASED [None]
